FAERS Safety Report 13603618 (Version 2)
Quarter: 2017Q2

REPORT INFORMATION
  Report Type: Spontaneous
  Country: GB (occurrence: GB)
  Receive Date: 20170601
  Receipt Date: 20170607
  Transmission Date: 20170830
  Serious: Yes (Death, Hospitalization, Other)
  Sender: FDA-Public Use
  Company Number: GB-MYLANLABS-2017M1032151

PATIENT

DRUGS (5)
  1. CLOZARIL [Suspect]
     Active Substance: CLOZAPINE
     Indication: SCHIZOPHRENIA
     Dosage: UNK
     Route: 048
     Dates: start: 20080425
  2. CLOZARIL [Suspect]
     Active Substance: CLOZAPINE
     Dosage: 350 MG, QD
     Route: 048
  3. METFORMIN [Concomitant]
     Active Substance: METFORMIN HYDROCHLORIDE
     Indication: DIABETES MELLITUS
     Dosage: 1000 MG, AM
     Route: 048
     Dates: start: 20170522
  4. PIRENZEPINE [Concomitant]
     Active Substance: PIRENZEPINE
     Indication: PRODUCT USED FOR UNKNOWN INDICATION
     Dosage: 50 MG, QD
     Route: 048
     Dates: start: 20170522
  5. LEVOTHYROXINE. [Concomitant]
     Active Substance: LEVOTHYROXINE
     Indication: PRODUCT USED FOR UNKNOWN INDICATION
     Dosage: 25 ?G, QD
     Route: 048
     Dates: start: 20170522

REACTIONS (5)
  - Epilepsy [Unknown]
  - Lower respiratory tract infection [Unknown]
  - Cardiac failure [Unknown]
  - Death [Fatal]
  - Renal failure [Unknown]

NARRATIVE: CASE EVENT DATE: 20170522
